FAERS Safety Report 9131562 (Version 1)
Quarter: 2013Q1

REPORT INFORMATION
  Report Type: Spontaneous
  Country: US (occurrence: US)
  Receive Date: 20130301
  Receipt Date: 20130301
  Transmission Date: 20140127
  Serious: Yes (Hospitalization)
  Sender: FDA-Public Use
  Company Number: US-GILEAD-2013-0070711

PATIENT
  Age: 72 Year
  Sex: Female

DRUGS (2)
  1. LETAIRIS [Suspect]
     Indication: PULMONARY ARTERIAL HYPERTENSION
     Dosage: 10 MG, QD
     Route: 048
  2. IMDUR [Suspect]
     Dosage: UNK
     Dates: start: 201212

REACTIONS (3)
  - Vaginal haemorrhage [Recovered/Resolved]
  - Eye pain [Not Recovered/Not Resolved]
  - Urinary tract infection [Unknown]
